FAERS Safety Report 9525338 (Version 1)
Quarter: 2013Q1

REPORT INFORMATION
  Report Type: Spontaneous
  Country: US (occurrence: None)
  Receive Date: 20130314
  Receipt Date: 20130314
  Transmission Date: 20140127
  Serious: No
  Sender: FDA-Public Use
  Company Number: 1212USA0033299

PATIENT
  Age: 49 Year
  Sex: Female

DRUGS (3)
  1. PEG-INTRON (PEGINTERFERON ALFA-2B) POWDER FOR INJECTION [Suspect]
     Indication: HEPATITIS C
     Dates: start: 20121105
  2. REBETOL (RIBAVIRIN) CAPSULE [Suspect]
     Indication: HEPATITIS C
     Route: 048
     Dates: start: 20121105
  3. VICTRELIS(BOCEPREVIR) CAPSULE [Suspect]
     Indication: HEPATITIS C
     Route: 048
     Dates: start: 20121210

REACTIONS (2)
  - Fatigue [None]
  - Decreased appetite [None]
